FAERS Safety Report 10481305 (Version 4)
Quarter: 2015Q2

REPORT INFORMATION
  Report Type: Spontaneous
  Country: US (occurrence: US)
  Receive Date: 20140929
  Receipt Date: 20150513
  Transmission Date: 20150821
  Serious: No
  Sender: FDA-Public Use
  Company Number: US-PFIZER INC-2014260125

PATIENT
  Age: 28 Year
  Sex: Male

DRUGS (1)
  1. BENEFIX [Suspect]
     Active Substance: COAGULATION FACTOR IX RECOMBINANT HUMAN\ISOPROPYL ALCOHOL
     Indication: FACTOR IX DEFICIENCY
     Dosage: 4000 IU SLOW IV EVERY 24 HOURS AS NEEDED, MONTHLY DOSAGE 12,000 IU, 3 DOSES/MONTH
     Route: 042
     Dates: start: 20140922

REACTIONS (1)
  - Tooth impacted [Unknown]
